FAERS Safety Report 7750120-9 (Version None)
Quarter: 2011Q3

REPORT INFORMATION
  Report Type: 
  Country: None (occurrence: None)
  Receive Date: 20110912
  Receipt Date: 20110829
  Transmission Date: 20111222
  Serious: Yes (Life-Threatening)
  Sender: FDA-Public Use
  Company Number: TCI2011A04657

PATIENT
  Age: 81 Year

DRUGS (7)
  1. ACTOS [Suspect]
     Indication: DIABETES MELLITUS
     Dosage: 30 MG (30 MG, 1 D)
     Route: 048
     Dates: start: 20060101, end: 20110815
  2. JANUVIA [Concomitant]
  3. MEXITIL [Concomitant]
  4. ZETIA [Concomitant]
  5. GLYBURIDE [Concomitant]
  6. FRANDOL (ISOSORBIDE DINITRATE0 [Concomitant]
  7. HALCION [Concomitant]

REACTIONS (1)
  - BLADDER CANCER [None]
